FAERS Safety Report 10433070 (Version 1)
Quarter: 2014Q3

REPORT INFORMATION
  Report Type: Report from Study
  Country: US (occurrence: US)
  Receive Date: 20140905
  Receipt Date: 20140905
  Transmission Date: 20150326
  Serious: Yes (Life-Threatening, Hospitalization)
  Sender: FDA-Public Use
  Company Number: US-EISAI INC-E2007-01876-CLI-US

PATIENT
  Age: 35 Year
  Sex: Male
  Weight: 68.8 kg

DRUGS (8)
  1. E2007 (PERAMPANEL) [Suspect]
     Active Substance: PERAMPANEL
     Dosage: EXTENSION PHASE-CONVERSION PERIOD
     Route: 048
     Dates: start: 201405, end: 20140605
  2. E2007 (PERAMPANEL) [Suspect]
     Active Substance: PERAMPANEL
     Route: 048
     Dates: start: 20140606
  3. FISH OIL [Concomitant]
     Active Substance: FISH OIL
  4. E2007 (PERAMPANEL) [Suspect]
     Active Substance: PERAMPANEL
     Indication: GENERALISED TONIC-CLONIC SEIZURE
     Dosage: CORE STUDY- DOUBLE-BLIND
     Route: 048
     Dates: start: 201401, end: 201405
  5. LAMOTRIGINE. [Concomitant]
     Active Substance: LAMOTRIGINE
  6. MULTIVITAMIN [Concomitant]
     Active Substance: VITAMINS
  7. CLONAZEPAM. [Concomitant]
     Active Substance: CLONAZEPAM
  8. DEPAKOTE [Concomitant]
     Active Substance: DIVALPROEX SODIUM

REACTIONS (1)
  - Pneumonia [Not Recovered/Not Resolved]

NARRATIVE: CASE EVENT DATE: 20140821
